FAERS Safety Report 25471221 (Version 1)
Quarter: 2025Q2

REPORT INFORMATION
  Report Type: Spontaneous
  Country: PT (occurrence: PT)
  Receive Date: 20250624
  Receipt Date: 20250624
  Transmission Date: 20250716
  Serious: Yes (Other)
  Sender: AUROBINDO
  Company Number: PT-009507513-2289794

PATIENT
  Age: 41 Year
  Sex: Female

DRUGS (6)
  1. CARBOPLATIN [Suspect]
     Active Substance: CARBOPLATIN
     Indication: Product used for unknown indication
     Route: 065
     Dates: start: 2023
  2. CARBOPLATIN [Suspect]
     Active Substance: CARBOPLATIN
     Route: 065
     Dates: start: 20241009
  3. PEMETREXED [Suspect]
     Active Substance: PEMETREXED
     Indication: Product used for unknown indication
     Route: 065
     Dates: start: 2023, end: 20240111
  4. DOCETAXEL [Suspect]
     Active Substance: DOCETAXEL
     Indication: Product used for unknown indication
     Route: 065
     Dates: start: 20240404, end: 20240619
  5. PEMBROLIZUMAB [Suspect]
     Active Substance: PEMBROLIZUMAB
     Indication: Product used for unknown indication
     Route: 065
     Dates: start: 2023, end: 20240111
  6. ETOPOSIDE [Suspect]
     Active Substance: ETOPOSIDE
     Indication: Product used for unknown indication
     Route: 065
     Dates: start: 20241009

REACTIONS (4)
  - Malignant neoplasm progression [Unknown]
  - Pneumonectomy [Unknown]
  - Radiotherapy [Unknown]
  - Myelosuppression [Unknown]

NARRATIVE: CASE EVENT DATE: 20240101
